FAERS Safety Report 17372661 (Version 5)
Quarter: 2020Q3

REPORT INFORMATION
  Report Type: Report from Study
  Country: US (occurrence: US)
  Receive Date: 20200205
  Receipt Date: 20200928
  Transmission Date: 20201102
  Serious: Yes (Hospitalization, Other)
  Sender: FDA-Public Use
  Company Number: NVSC2020US028991

PATIENT
  Sex: Female

DRUGS (1)
  1. COSENTYX [Suspect]
     Active Substance: SECUKINUMAB
     Indication: PRODUCT USED FOR UNKNOWN INDICATION
     Dosage: UNK
     Route: 065

REACTIONS (7)
  - Joint swelling [Unknown]
  - Laryngitis [Unknown]
  - Cerebrovascular accident [Unknown]
  - Back pain [Unknown]
  - Dizziness [Unknown]
  - Blood pressure increased [Unknown]
  - Pain [Unknown]
